FAERS Safety Report 9153971 (Version 1)
Quarter: 2013Q1

REPORT INFORMATION
  Report Type: Spontaneous
  Country: US (occurrence: None)
  Receive Date: 20130306
  Receipt Date: 20130306
  Transmission Date: 20140127
  Serious: No
  Sender: FDA-Public Use
  Company Number: None

PATIENT
  Age: 55 Year
  Sex: Female
  Weight: 99.79 kg

DRUGS (1)
  1. CYMBALTA 60 MG ELI LILL [Suspect]
     Dates: start: 20130110, end: 20130301

REACTIONS (5)
  - Nightmare [None]
  - Asthenia [None]
  - Drug withdrawal syndrome [None]
  - Diabetes mellitus [None]
  - Heart rate increased [None]
